FAERS Safety Report 21756822 (Version 1)
Quarter: 2022Q4

REPORT INFORMATION
  Report Type: Spontaneous
  Country: US (occurrence: None)
  Receive Date: 20221220
  Receipt Date: 20221220
  Transmission Date: 20230112
  Serious: No
  Sender: FDA-Public Use
  Company Number: 2022A392768

PATIENT
  Age: 25897 Day
  Sex: Male
  Weight: 69.9 kg

DRUGS (1)
  1. BUDESONIDE\FORMOTEROL\GLYCOPYRRONIUM [Suspect]
     Active Substance: BUDESONIDE\FORMOTEROL\GLYCOPYRRONIUM
     Indication: Chronic obstructive pulmonary disease
     Dosage: 160/9/4.8 MCG, 2 INHALATIONS 2 TIMES A DAY
     Route: 055

REACTIONS (4)
  - Dyspnoea [Recovered/Resolved]
  - Feeling abnormal [Recovered/Resolved]
  - Incorrect dose administered by device [Recovered/Resolved]
  - Device delivery system issue [Unknown]

NARRATIVE: CASE EVENT DATE: 20221123
